FAERS Safety Report 8354117-X (Version None)
Quarter: 2012Q2

REPORT INFORMATION
  Report Type: 
  Country: None (occurrence: None)
  Receive Date: 20120511
  Receipt Date: 20120430
  Transmission Date: 20120825
  Serious: No
  Sender: FDA-Public Use
  Company Number: US-BAYER-2012-045361

PATIENT
  Sex: Female

DRUGS (1)
  1. NAPROXEN SODIUM [Suspect]
     Indication: MYALGIA
     Dosage: 1 DF, QD
     Route: 048
     Dates: start: 20120429, end: 20120430

REACTIONS (4)
  - MYALGIA [None]
  - EYELID IRRITATION [None]
  - RHINORRHOEA [None]
  - SNEEZING [None]
